FAERS Safety Report 24356786 (Version 1)
Quarter: 2024Q3

REPORT INFORMATION
  Report Type: Spontaneous
  Country: US (occurrence: US)
  Receive Date: 20240924
  Receipt Date: 20240924
  Transmission Date: 20241016
  Serious: No
  Sender: ASCEND
  Company Number: US-Ascend Therapeutics US, LLC-2161939

PATIENT

DRUGS (2)
  1. ANDROGEL [Suspect]
     Active Substance: TESTOSTERONE
     Indication: Product used for unknown indication
  2. ANDROGEL [Suspect]
     Active Substance: TESTOSTERONE

REACTIONS (1)
  - Unevaluable event [Unknown]
